FAERS Safety Report 13139539 (Version 1)
Quarter: 2017Q1

REPORT INFORMATION
  Report Type: Spontaneous
  Country: US (occurrence: US)
  Receive Date: 20170123
  Receipt Date: 20170123
  Transmission Date: 20170428
  Serious: No
  Sender: FDA-Public Use
  Company Number: US-REGENERON PHARMACEUTICALS, INC.-2016-16412

PATIENT

DRUGS (3)
  1. EYLEA [Suspect]
     Active Substance: AFLIBERCEPT
     Dosage: BOTH EYES (OU)
     Route: 031
     Dates: start: 20160421, end: 20160421
  2. EYLEA [Suspect]
     Active Substance: AFLIBERCEPT
     Indication: NEOVASCULAR AGE-RELATED MACULAR DEGENERATION
     Dosage: LEFT EYE (OS)
     Route: 031
     Dates: start: 2015
  3. EYLEA [Suspect]
     Active Substance: AFLIBERCEPT
     Dosage: BOTH EYES (OU)
     Route: 031
     Dates: start: 201601

REACTIONS (2)
  - Headache [Unknown]
  - Malaise [Unknown]

NARRATIVE: CASE EVENT DATE: 20160427
